FAERS Safety Report 17042398 (Version 1)
Quarter: 2019Q4

REPORT INFORMATION
  Report Type: Report from Study
  Country: US (occurrence: US)
  Receive Date: 20191118
  Receipt Date: 20191118
  Transmission Date: 20200122
  Serious: Yes (Hospitalization)
  Sender: FDA-Public Use
  Company Number: US-JNJFOC-20191115421

PATIENT
  Age: 67 Year
  Sex: Male

DRUGS (13)
  1. MULTIVITAMIN                       /00097801/ [Concomitant]
     Active Substance: VITAMINS
  2. RAPAFLO [Concomitant]
     Active Substance: SILODOSIN
  3. COLACE [Concomitant]
     Active Substance: DOCUSATE SODIUM
  4. MUPIROCIN. [Concomitant]
     Active Substance: MUPIROCIN
  5. VALTREX [Concomitant]
     Active Substance: VALACYCLOVIR HYDROCHLORIDE
  6. IMBRUVICA [Suspect]
     Active Substance: IBRUTINIB
     Indication: LYMPHOCYTIC LEUKAEMIA
     Dosage: 420 MG, QD
     Route: 048
  7. LASIX [Concomitant]
     Active Substance: FUROSEMIDE
  8. PEPCID                             /00305201/ [Concomitant]
     Active Substance: ALUMINUM HYDROXIDE\MAGNESIUM CARBONATE
  9. BACTRIM [Concomitant]
     Active Substance: SULFAMETHOXAZOLE\TRIMETHOPRIM
  10. VITAMIN D3 [Concomitant]
     Active Substance: CHOLECALCIFEROL
  11. AVODART [Concomitant]
     Active Substance: DUTASTERIDE
  12. ALLOPURINOL. [Concomitant]
     Active Substance: ALLOPURINOL
  13. NORVASC [Concomitant]
     Active Substance: AMLODIPINE BESYLATE

REACTIONS (2)
  - Faeces soft [Not Recovered/Not Resolved]
  - Haemoglobin decreased [Recovering/Resolving]

NARRATIVE: CASE EVENT DATE: 20191029
